FAERS Safety Report 25131358 (Version 1)
Quarter: 2025Q1

REPORT INFORMATION
  Report Type: Spontaneous
  Country: ES (occurrence: ES)
  Receive Date: 20250327
  Receipt Date: 20250327
  Transmission Date: 20250408
  Serious: Yes (Hospitalization)
  Sender: NOVARTIS
  Company Number: None

PATIENT
  Age: 67 Year
  Sex: Male
  Weight: 97 kg

DRUGS (8)
  1. TEGRETOL [Suspect]
     Active Substance: CARBAMAZEPINE
     Indication: Pain
     Dosage: 400 MG, Q12H
     Route: 048
     Dates: start: 20241219, end: 20250217
  2. GABAPENTIN [Suspect]
     Active Substance: GABAPENTIN
     Indication: Neuralgia
     Dosage: 600 MG, Q8H (90 COMPRIMIDOS )
     Route: 048
     Dates: start: 20241028, end: 20250217
  3. OMEPRAZOLE [Suspect]
     Active Substance: OMEPRAZOLE
     Indication: Prophylaxis
     Dosage: 20 MG, QD
     Route: 048
     Dates: start: 20241219, end: 20250217
  4. HYDROCHLOROTHIAZIDE\OLMESARTAN MEDOXOMIL [Suspect]
     Active Substance: HYDROCHLOROTHIAZIDE\OLMESARTAN MEDOXOMIL
     Indication: Hypertension
     Dosage: 1 DOSAGE FORM, QD (COMPRIMIDOS RECUBIERTOS CON PELICULA)
     Route: 048
     Dates: start: 20151207, end: 20250217
  5. DEXAMETHASONE [Suspect]
     Active Substance: DEXAMETHASONE
     Indication: Product used for unknown indication
     Dosage: 4 MG, QD
     Route: 048
     Dates: start: 20250205, end: 20250214
  6. DEXKETOPROFEN\TRAMADOL [Suspect]
     Active Substance: DEXKETOPROFEN\TRAMADOL
     Indication: Pain
     Dosage: 1 DOSAGE FORM, Q8H
     Route: 048
     Dates: start: 20250130, end: 20250217
  7. TRYPTIZOL [Suspect]
     Active Substance: AMITRIPTYLINE HYDROCHLORIDE
     Indication: Pain
     Dosage: 25 MG, QD
     Route: 048
     Dates: start: 20250130, end: 20250217
  8. NALOXONE HYDROCHLORIDE\OXYCODONE HYDROCHLORIDE [Suspect]
     Active Substance: NALOXONE HYDROCHLORIDE\OXYCODONE HYDROCHLORIDE
     Indication: Pain
     Dosage: 1 DOSAGE FORM, Q12H
     Route: 048
     Dates: start: 20241219, end: 20250217

REACTIONS (1)
  - Toxic skin eruption [Recovered/Resolved]

NARRATIVE: CASE EVENT DATE: 20250214
